FAERS Safety Report 8757621 (Version 1)
Quarter: 2012Q4

REPORT INFORMATION
  Report Type: 
  Country: US (occurrence: US)
  Receive Date: 20120828
  Receipt Date: 20120828
  Transmission Date: 20130627
  Serious: Yes (Other)
  Sender: FDA-Public Use
  Company Number: PHHY2012US072800

PATIENT
  Age: 48 Year
  Sex: Male

DRUGS (1)
  1. WARFARIN [Suspect]
     Indication: ANTICOAGULANT THERAPY

REACTIONS (5)
  - Nephropathy [Unknown]
  - Tubulointerstitial nephritis [Unknown]
  - Haematuria [Unknown]
  - Proteinuria [Unknown]
  - Kidney fibrosis [Unknown]
